FAERS Safety Report 16043449 (Version 1)
Quarter: 2019Q1

REPORT INFORMATION
  Report Type: Spontaneous
  Country: US (occurrence: US)
  Receive Date: 20190306
  Receipt Date: 20190306
  Transmission Date: 20190418
  Serious: Yes (Hospitalization, Other)
  Sender: FDA-Public Use
  Company Number: US-PTC THERAPEUTICS, INC.-US-2019PTC000383

PATIENT

DRUGS (1)
  1. EMFLAZA [Suspect]
     Active Substance: DEFLAZACORT
     Indication: MUSCULAR DYSTROPHY
     Dosage: 39 MG, QD
     Route: 048

REACTIONS (7)
  - Device dislocation [Unknown]
  - Back injury [Unknown]
  - Product dose omission [Unknown]
  - Femur fracture [Unknown]
  - Coccydynia [Unknown]
  - Influenza [Unknown]
  - Spinal operation [Unknown]

NARRATIVE: CASE EVENT DATE: 201901
